FAERS Safety Report 14432471 (Version 1)
Quarter: 2018Q1

REPORT INFORMATION
  Report Type: Spontaneous
  Country: JP (occurrence: JP)
  Receive Date: 20180124
  Receipt Date: 20180124
  Transmission Date: 20180509
  Serious: Yes (Death)
  Sender: FDA-Public Use
  Company Number: JP-BAYER-2018-010238

PATIENT
  Sex: Male

DRUGS (1)
  1. NEXAVAR [Suspect]
     Active Substance: SORAFENIB
     Indication: THYROID CANCER
     Dosage: DAILY DOSE 400 MG,BID
     Route: 048
     Dates: start: 20171218, end: 20180110

REACTIONS (1)
  - Thyroid cancer [Fatal]

NARRATIVE: CASE EVENT DATE: 20180110
